FAERS Safety Report 23138302 (Version 1)
Quarter: 2023Q4

REPORT INFORMATION
  Report Type: Spontaneous
  Country: US (occurrence: None)
  Receive Date: 20231101
  Receipt Date: 20231101
  Transmission Date: 20240109
  Serious: Yes (Death)
  Sender: FDA-Public Use
  Company Number: None

PATIENT
  Age: 64 Year
  Sex: Male

DRUGS (7)
  1. TASIGNA [Suspect]
     Active Substance: NILOTINIB
     Indication: Leukaemia
     Dosage: FREQUENCY : TWICE A DAY;?
     Route: 048
     Dates: start: 20210715
  2. ATORVASTATIN 80MG TABLETS [Concomitant]
     Dates: start: 20230712
  3. CODEINE-GUAIFEN 10-100MG/5ML SOL [Concomitant]
     Dates: start: 20230713
  4. VELPHORO [Concomitant]
     Active Substance: SUCROFERRIC OXYHYDROXIDE
     Dates: start: 20221117
  5. LANTUS SOLOSTAR PEN INJ 3ML [Concomitant]
     Dates: start: 20220203
  6. CARVEDILOL 25MG TABLETS [Concomitant]
     Dates: start: 20211117
  7. ALLOPURINOL 100MG TABLETS [Concomitant]
     Dates: start: 20221111

REACTIONS (1)
  - Death [None]

NARRATIVE: CASE EVENT DATE: 20231101
